FAERS Safety Report 11723041 (Version 1)
Quarter: 2015Q4

REPORT INFORMATION
  Report Type: Spontaneous
  Country: US (occurrence: None)
  Receive Date: 20151110
  Receipt Date: 20151110
  Transmission Date: 20160304
  Serious: Yes (Disabling)
  Sender: FDA-Public Use
  Company Number: None

PATIENT
  Age: 60 Year
  Sex: Female
  Weight: 145.15 kg

DRUGS (1)
  1. LEVAQUIN [Suspect]
     Active Substance: LEVOFLOXACIN
     Indication: DIVERTICULITIS
     Dosage: 2 TIMES PER DAY
     Route: 048

REACTIONS (4)
  - Musculoskeletal pain [None]
  - Arthralgia [None]
  - Tendonitis [None]
  - Dizziness [None]

NARRATIVE: CASE EVENT DATE: 20150831
